FAERS Safety Report 23526301 (Version 3)
Quarter: 2024Q1

REPORT INFORMATION
  Report Type: Spontaneous
  Country: AT (occurrence: AT)
  Receive Date: 20240215
  Receipt Date: 20240301
  Transmission Date: 20240410
  Serious: Yes (Hospitalization, Other)
  Sender: FDA-Public Use
  Company Number: AT-ROCHE-2215193

PATIENT
  Age: 65 Year
  Sex: Female
  Weight: 80.4 kg

DRUGS (109)
  1. CAPECITABINE [Suspect]
     Active Substance: CAPECITABINE
     Indication: Breast cancer metastatic
     Dosage: MOST RECENT DOSE PRIOR TO THE EVENT LYMPH NODE METASTATIS AXILLA AND PORT A CATH INFECTION: 08/JA...
     Route: 048
     Dates: start: 20191002, end: 20200107
  2. CAPECITABINE [Suspect]
     Active Substance: CAPECITABINE
     Indication: Breast cancer metastatic
     Dosage: DAILY DOSE: 3000 MILLIGRAM
     Route: 048
     Dates: start: 20200108, end: 20200421
  3. CAPECITABINE [Suspect]
     Active Substance: CAPECITABINE
     Indication: Breast cancer metastatic
     Dosage: DAILY FOR 2 WEEKS THEN PAUSE FOR 1 WEEK?DAILY DOSE: 2000 MILLIGRAM
     Route: 048
     Dates: start: 20201230, end: 20210203
  4. CAPECITABINE [Suspect]
     Active Substance: CAPECITABINE
     Indication: Breast cancer metastatic
     Dosage: DAILY DOSE: 3500 MILLIGRAM
     Route: 048
     Dates: start: 20210210, end: 20210224
  5. KADCYLA [Suspect]
     Active Substance: ADO-TRASTUZUMAB EMTANSINE
     Indication: Breast cancer metastatic
     Route: 042
     Dates: start: 20190306, end: 20190909
  6. TYKERB [Suspect]
     Active Substance: LAPATINIB DITOSYLATE
     Indication: Breast cancer metastatic
     Dosage: MOST RECENT DOSE PRIOR TO THE EVENT LYMPH NODE METASTATIS AXILLA AND PORT A CATH INFECTION: 08/JA...
     Route: 048
     Dates: start: 20191002, end: 20200107
  7. TYKERB [Suspect]
     Active Substance: LAPATINIB DITOSYLATE
     Indication: Breast cancer metastatic
     Dosage: DAILY DOSE: 1000 MILLIGRAM
     Route: 048
     Dates: start: 20200108, end: 20200421
  8. NAVELBINE [Suspect]
     Active Substance: VINORELBINE TARTRATE
     Indication: Breast cancer metastatic
     Route: 042
     Dates: start: 20200422, end: 20200722
  9. BLEOMYCIN [Suspect]
     Active Substance: BLEOMYCIN SULFATE
     Indication: Breast cancer metastatic
     Dosage: DRUG WAS DISCONTINUED AS PLANNED NUMBER OF CYCLES COMPLETED?DAILY DOSE: 26.85 MILLIGRAM
     Route: 042
     Dates: start: 20200519, end: 20200519
  10. BLEOMYCIN [Suspect]
     Active Substance: BLEOMYCIN SULFATE
     Indication: Breast cancer metastatic
     Dosage: DRUG WAS DISCONTINUED AS PLANNED NUMBER OF CYCLES COMPLETED?DAILY DOSE: 1 DOSAGE FORM
     Route: 042
     Dates: start: 20210105, end: 20210105
  11. TAXOTERE [Suspect]
     Active Substance: DOCETAXEL
     Indication: Breast cancer metastatic
     Dosage: MOST RECENT DOSE PRIOR TO THE EVENTS: 09/JUN/2017
     Route: 042
     Dates: start: 20170224, end: 20170317
  12. TAXOTERE [Suspect]
     Active Substance: DOCETAXEL
     Indication: Breast cancer metastatic
     Dosage: 175 MG IN 17 DAYS
     Route: 042
     Dates: start: 20170410, end: 20170427
  13. TAXOTERE [Suspect]
     Active Substance: DOCETAXEL
     Indication: Breast cancer metastatic
     Dosage: DAILY DOSE: 183 MILLIGRAM
     Route: 042
     Dates: start: 20170519, end: 20170519
  14. TAXOTERE [Suspect]
     Active Substance: DOCETAXEL
     Indication: Breast cancer metastatic
     Route: 042
     Dates: start: 20170609, end: 20170630
  15. TAXOTERE [Suspect]
     Active Substance: DOCETAXEL
     Indication: Breast cancer metastatic
     Route: 042
     Dates: start: 20210317, end: 20210428
  16. HERCEPTIN [Suspect]
     Active Substance: TRASTUZUMAB
     Indication: Breast cancer metastatic
     Dosage: MOST RECENT DOSE PRIOR TO THE EVENTS: 10/AUG/2017?DAILY DOSE: 624 MILLIGRAM
     Route: 042
     Dates: start: 20170224, end: 20170224
  17. HERCEPTIN [Suspect]
     Active Substance: TRASTUZUMAB
     Indication: Breast cancer metastatic
     Dosage: MOST RECENT DOSE PRIOR TO THE EVENTS: 10/AUG/2017?DAILY DOSE: 468 MILLIGRAM
     Route: 042
     Dates: start: 20170317, end: 20170317
  18. HERCEPTIN [Suspect]
     Active Substance: TRASTUZUMAB
     Indication: Breast cancer metastatic
     Dosage: 390 MILLIGRAM IN 17 DAY
     Route: 042
     Dates: start: 20170410, end: 20170427
  19. HERCEPTIN [Suspect]
     Active Substance: TRASTUZUMAB
     Indication: Breast cancer metastatic
     Route: 042
     Dates: start: 20170519, end: 20170519
  20. HERCEPTIN [Suspect]
     Active Substance: TRASTUZUMAB
     Indication: Breast cancer metastatic
     Route: 042
     Dates: start: 20170609, end: 20170630
  21. HERCEPTIN [Suspect]
     Active Substance: TRASTUZUMAB
     Indication: Breast cancer metastatic
     Dosage: DAILY DOSE: 468 MILLIGRAM
     Route: 042
     Dates: start: 20170720, end: 20170720
  22. HERCEPTIN [Suspect]
     Active Substance: TRASTUZUMAB
     Indication: Breast cancer metastatic
     Route: 042
     Dates: start: 20170810, end: 20190213
  23. HERCEPTIN [Suspect]
     Active Substance: TRASTUZUMAB
     Indication: Breast cancer metastatic
     Route: 042
     Dates: start: 20200422, end: 20200615
  24. HERCEPTIN [Suspect]
     Active Substance: TRASTUZUMAB
     Indication: Breast cancer metastatic
     Route: 042
     Dates: start: 20201230, end: 20210210
  25. HERCEPTIN [Suspect]
     Active Substance: TRASTUZUMAB
     Indication: Breast cancer metastatic
     Route: 042
     Dates: start: 20210317, end: 20210428
  26. PERJETA [Suspect]
     Active Substance: PERTUZUMAB
     Indication: Breast cancer metastatic
     Dosage: MOST RECENT DOSE PRIOR TO THE EVENT WORSENING OF BRAIN METASTASES: 17/MAR/2017
     Route: 042
     Dates: start: 20170224, end: 20170224
  27. PERJETA [Suspect]
     Active Substance: PERTUZUMAB
     Indication: Breast cancer metastatic
     Dosage: DAILY DOSE: 420 MILLIGRAM
     Route: 042
     Dates: start: 20170317, end: 20190213
  28. PERJETA [Suspect]
     Active Substance: PERTUZUMAB
     Indication: Breast cancer metastatic
     Dosage: DAILY DOSE: 840 MILLIGRAM
     Route: 042
     Dates: start: 20200422, end: 20200615
  29. PERJETA [Suspect]
     Active Substance: PERTUZUMAB
     Indication: Breast cancer metastatic
     Dosage: DAILY DOSE: 840 MILLIGRAM
     Route: 042
     Dates: start: 20210317, end: 20210428
  30. FASLODEX [Suspect]
     Active Substance: FULVESTRANT
     Indication: Breast cancer metastatic
     Dosage: TWICE A WEEK/MOST RECENT DOSE PRIOR TO THE EVENT LYMPH NODE METASTATIS AXILLA AND PORT A CATH INF...
     Route: 030
     Dates: start: 20171002, end: 20171115
  31. FASLODEX [Suspect]
     Active Substance: FULVESTRANT
     Indication: Breast cancer metastatic
     Route: 030
     Dates: start: 20171116, end: 20191001
  32. FAM-TRASTUZUMAB DERUXTECAN-NXKI [Suspect]
     Active Substance: FAM-TRASTUZUMAB DERUXTECAN-NXKI
     Indication: Breast cancer metastatic
     Route: 058
     Dates: start: 20200814, end: 20201015
  33. DENOSUMAB [Suspect]
     Active Substance: DENOSUMAB
     Indication: Breast cancer metastatic
     Route: 042
     Dates: start: 20201230, end: 20210210
  34. TUCATINIB [Suspect]
     Active Substance: TUCATINIB
     Indication: Breast cancer metastatic
     Dosage: DAILY DOSE: 600 MILLIGRAM
     Route: 048
     Dates: start: 20201230, end: 20210210
  35. DOXIL [Suspect]
     Active Substance: DOXORUBICIN HYDROCHLORIDE
     Indication: Breast cancer metastatic
     Dosage: DAILY DOSE: 104.4 MILLIGRAM
     Route: 042
     Dates: start: 20210608, end: 20210608
  36. VITAMINS WITH MINERALS [Concomitant]
     Active Substance: MINERALS\VITAMINS
     Dates: start: 20170203, end: 20210612
  37. EDOXABAN TOSYLATE [Concomitant]
     Active Substance: EDOXABAN TOSYLATE
     Dates: start: 20191120, end: 20200608
  38. EDOXABAN TOSYLATE [Concomitant]
     Active Substance: EDOXABAN TOSYLATE
     Dates: start: 20200613, end: 20210611
  39. EMEND [Concomitant]
     Active Substance: APREPITANT
     Dates: start: 20200428, end: 20200430
  40. Paspertin [Concomitant]
     Indication: Gastrointestinal disorder
     Dates: start: 20200506, end: 20201212
  41. Paspertin [Concomitant]
     Indication: Gastrointestinal disorder
     Dates: start: 20210608, end: 20210623
  42. PANTOPRAZOLE SODIUM [Concomitant]
     Active Substance: PANTOPRAZOLE SODIUM
     Indication: Gastrointestinal disorder
     Dosage: DAILY
     Route: 048
     Dates: start: 20170721
  43. PANTOPRAZOLE SODIUM [Concomitant]
     Active Substance: PANTOPRAZOLE SODIUM
     Indication: Gastrointestinal disorder
     Dosage: DAILY
     Route: 048
     Dates: start: 20170722, end: 20180327
  44. PANTOPRAZOLE SODIUM [Concomitant]
     Active Substance: PANTOPRAZOLE SODIUM
     Indication: Gastrointestinal disorder
     Dates: start: 20200506, end: 20200519
  45. PANTOPRAZOLE SODIUM [Concomitant]
     Active Substance: PANTOPRAZOLE SODIUM
     Indication: Gastrointestinal disorder
     Dates: start: 20210317, end: 20210607
  46. PANTOPRAZOLE SODIUM [Concomitant]
     Active Substance: PANTOPRAZOLE SODIUM
     Indication: Gastrointestinal disorder
     Dates: start: 20210608, end: 20210610
  47. PANTOPRAZOLE SODIUM [Concomitant]
     Active Substance: PANTOPRAZOLE SODIUM
     Indication: Gastrointestinal disorder
     Dates: start: 20210618, end: 20210623
  48. LOVENOX [Concomitant]
     Active Substance: ENOXAPARIN SODIUM
     Dates: start: 20170224, end: 20171130
  49. Oleovit [Concomitant]
     Route: 048
     Dates: start: 20170329, end: 20210615
  50. NERIFORTE [Concomitant]
     Route: 061
     Dates: start: 20200430, end: 20200515
  51. FENTANYL [Concomitant]
     Active Substance: FENTANYL\FENTANYL CITRATE
     Route: 062
     Dates: start: 20200515
  52. OLIVE OIL [Concomitant]
     Active Substance: OLIVE OIL
     Dates: start: 20191002, end: 20200512
  53. Leukichtan [Concomitant]
     Route: 061
     Dates: start: 20200430, end: 20200515
  54. XGEVA [Concomitant]
     Active Substance: DENOSUMAB
     Dates: start: 20170202, end: 20210521
  55. Furosemid (Lasix) [Concomitant]
     Dates: start: 20170611, end: 20170809
  56. Furosemid (Lasix) [Concomitant]
     Route: 048
     Dates: start: 20170713, end: 20170809
  57. Furosemid (Lasix) [Concomitant]
     Dosage: ONGOING = NOT CHECKED
     Dates: start: 20170810, end: 20171213
  58. Furosemid (Lasix) [Concomitant]
     Route: 048
     Dates: start: 20170810, end: 20190212
  59. ACETAMINOPHEN [Concomitant]
     Active Substance: ACETAMINOPHEN
     Dates: start: 20200506, end: 20201215
  60. ACETAMINOPHEN [Concomitant]
     Active Substance: ACETAMINOPHEN
     Dates: start: 20210622, end: 20210622
  61. Kalioral [Concomitant]
     Route: 048
     Dates: start: 20200427, end: 20200428
  62. PREGABALIN [Concomitant]
     Active Substance: PREGABALIN
     Route: 048
     Dates: start: 20170428, end: 20180123
  63. PREGABALIN [Concomitant]
     Active Substance: PREGABALIN
     Dates: start: 20190821, end: 20210616
  64. Novalgin [Concomitant]
     Route: 048
     Dates: start: 20170329, end: 20180807
  65. Novalgin [Concomitant]
     Dates: start: 20210608, end: 20210612
  66. Novalgin [Concomitant]
     Dates: start: 20210618, end: 20210618
  67. LEVOFLOXACIN [Concomitant]
     Active Substance: LEVOFLOXACIN
     Dates: start: 20200506, end: 20200512
  68. ONDANSETRON (Zofran, Ondansan) [Concomitant]
     Indication: Gastrointestinal disorder
     Dosage: ONDANSAN
     Route: 048
     Dates: start: 20170329, end: 20170809
  69. ONDANSETRON (Zofran, Ondansan) [Concomitant]
     Indication: Gastrointestinal disorder
     Dates: start: 20200506, end: 20201215
  70. ONDANSETRON (Zofran, Ondansan) [Concomitant]
     Indication: Gastrointestinal disorder
     Dates: start: 20210611, end: 20210616
  71. KCL [Concomitant]
     Active Substance: POTASSIUM CHLORIDE
     Route: 048
     Dates: start: 20170429, end: 20190305
  72. BETAISODONA [Concomitant]
     Active Substance: POVIDONE-IODINE
     Dates: start: 20200430, end: 20200515
  73. EUTHYROX [Concomitant]
     Active Substance: LEVOTHYROXINE SODIUM
     Route: 048
     Dates: start: 20170303, end: 20210615
  74. SILICON [Concomitant]
     Active Substance: SILICON
     Dosage: ONGOING = NOT CHECKED
     Dates: start: 20200521, end: 20200602
  75. DEXAMETHASONE [Concomitant]
     Active Substance: DEXAMETHASONE
     Dates: start: 20170104, end: 20170106
  76. DEXAMETHASONE [Concomitant]
     Active Substance: DEXAMETHASONE
     Dosage: ONGOING = NOT CHECKED
     Dates: start: 20170107, end: 20170108
  77. DEXAMETHASONE [Concomitant]
     Active Substance: DEXAMETHASONE
     Dosage: ONGOING = NOT CHECKED
     Route: 048
     Dates: start: 20171004, end: 20171006
  78. LACTULOSE [Concomitant]
     Active Substance: LACTULOSE
  79. VITAMIN C [Concomitant]
     Active Substance: ASCORBIC ACID
     Indication: Gastrointestinal disorder
     Dates: start: 20210611, end: 20210614
  80. CETYLPYRIDINIUM CHLORIDE (HALSET) [Concomitant]
     Indication: Cough
     Dates: start: 20210611, end: 20210615
  81. DROPERIDOL (XOMOLIX) [Concomitant]
     Indication: Gastrointestinal disorder
     Dates: start: 20210612, end: 20210617
  82. SCOTTOPECT [Concomitant]
     Indication: Cough
     Dates: start: 20210611, end: 20210613
  83. MORPHINE (VENDAL) [Concomitant]
     Indication: Dyspnoea
     Dates: start: 20210521, end: 20210616
  84. MORPHINE (VENDAL) [Concomitant]
     Indication: Dyspnoea
     Dates: start: 20210616, end: 20210623
  85. DROPERIDOL (PONVERIDOL) [Concomitant]
     Indication: Gastrointestinal disorder
     Dates: start: 20210618, end: 20210623
  86. HYOSCINE BUTYLBROMIDE (BUSCOPAN) [Concomitant]
     Indication: Gastrointestinal disorder
     Dates: start: 20210618, end: 20210618
  87. DRONABINOL [Concomitant]
     Active Substance: DRONABINOL
     Dates: start: 20210608, end: 20210612
  88. DIHYDROCODEINE (PARACODIN) [Concomitant]
     Indication: Cough
     Route: 048
     Dates: start: 20170708, end: 20170709
  89. DIHYDROCODEINE (PARACODIN) [Concomitant]
     Indication: Cough
     Dates: start: 20210428, end: 20210615
  90. PEGFILGRASTIM (ZIEXTENZO) [Concomitant]
     Dates: start: 20210610, end: 20210610
  91. POLYETHYLENE GLYCOL 3350\POTASSIUM CHLORIDE\SODIUM BICARBONATE\SODIUM [Concomitant]
     Active Substance: POLYETHYLENE GLYCOL 3350\POTASSIUM CHLORIDE\SODIUM BICARBONATE\SODIUM CHLORIDE
     Route: 048
     Dates: start: 20170709, end: 20170709
  92. POLYETHYLENE GLYCOL 3350\POTASSIUM CHLORIDE\SODIUM BICARBONATE\SODIUM [Concomitant]
     Active Substance: POLYETHYLENE GLYCOL 3350\POTASSIUM CHLORIDE\SODIUM BICARBONATE\SODIUM CHLORIDE
     Dates: start: 20210608, end: 20210616
  93. HYDROMORPHONE HYDROCHLORIDE (HYDAL) [Concomitant]
     Dates: start: 20210611, end: 20210615
  94. BETAMETHASONE DIPROPIONATE (DIPRODERM) [Concomitant]
     Route: 061
     Dates: start: 20191122, end: 20191215
  95. HYALURONATE SODIUM (HYLO COMOD) [Concomitant]
  96. LORAZEPAM (TEMESTA) [Concomitant]
  97. ALPRAZOLAM (XANOR) [Concomitant]
  98. AMPHOTERICIN B (AMPHO-MORAL) [Concomitant]
  99. FILGRASTIM (ZARZIO, RATIOGRASTIM) [Concomitant]
     Dosage: DAILY DOSE: 300 MICROGRAM
     Route: 058
     Dates: start: 20170704, end: 20170708
  100. FILGRASTIM (ZARZIO, RATIOGRASTIM) [Concomitant]
     Dates: start: 20200701
  101. CARMELLOSE SODIUM (AQUACEL) [Concomitant]
  102. LIDOCAINE (VERSATIS) [Concomitant]
  103. CEFEPIME [Concomitant]
     Active Substance: CEFEPIME HYDROCHLORIDE
  104. AMOXICILLIN, CLAVULANIC ACID (CURAM,) [Concomitant]
     Route: 048
     Dates: start: 20170711, end: 20170713
  105. TRAZODONE HYDROCHLORIDE (TRITTICO) [Concomitant]
     Dosage: DAILY DOSE: 25 MILLIGRAM
     Route: 048
     Dates: start: 20190731, end: 20190910
  106. TRIMETHOPRIM (MOTRIM) [Concomitant]
     Route: 048
     Dates: start: 20190619, end: 20190623
  107. AMOXICILLIN TRIHYDRATE, CLAVULANATE POTASSIUM (XICLAV) [Concomitant]
     Route: 048
     Dates: start: 20181218, end: 20181222
  108. PIPERACILLIN SODIUM, TAZOBACTAM SODIUM (TAZONAM) [Concomitant]
     Route: 042
     Dates: start: 20170708, end: 20170710
  109. ACTIMARIS [OXYGEN, SEA WATER] [Concomitant]
     Dates: start: 20200108, end: 20200128

REACTIONS (16)
  - Streptococcal sepsis [Recovered/Resolved]
  - Pseudomonal sepsis [Recovered/Resolved]
  - Brain oedema [Not Recovered/Not Resolved]
  - Metastases to lymph nodes [Not Recovered/Not Resolved]
  - Vascular device infection [Recovered/Resolved]
  - Nail bed inflammation [Not Recovered/Not Resolved]
  - Fatigue [Not Recovered/Not Resolved]
  - Pleural effusion [Recovered/Resolved]
  - C-reactive protein increased [Not Recovered/Not Resolved]
  - Candida infection [Not Recovered/Not Resolved]
  - Restlessness [Not Recovered/Not Resolved]
  - Skin fissures [Recovered/Resolved]
  - Paronychia [Recovered/Resolved]
  - Eczema [Not Recovered/Not Resolved]
  - Nasal mucosal disorder [Recovered/Resolved]
  - Varicose vein [Not Recovered/Not Resolved]

NARRATIVE: CASE EVENT DATE: 20191101
